FAERS Safety Report 9296283 (Version 1)
Quarter: 2013Q2

REPORT INFORMATION
  Report Type: Spontaneous
  Country: BR (occurrence: BR)
  Receive Date: 20130517
  Receipt Date: 20130517
  Transmission Date: 20140414
  Serious: Yes (Other)
  Sender: FDA-Public Use
  Company Number: BR-SANOFI-AVENTIS-2013SA048079

PATIENT
  Sex: Female

DRUGS (2)
  1. CLEXANE [Suspect]
     Indication: THROMBOSIS
     Route: 065
     Dates: start: 2011, end: 2011
  2. UTROGESTAN [Concomitant]
     Dates: start: 2011

REACTIONS (1)
  - Abortion [Unknown]
